FAERS Safety Report 4877093-0 (Version None)
Quarter: 2006Q1

REPORT INFORMATION
  Report Type: 
  Country: None (occurrence: None)
  Receive Date: 20060110
  Receipt Date: 20050302
  Transmission Date: 20060701
  Serious: Yes (Other)
  Sender: FDA-Public Use
  Company Number: US-MERCK-0503USA00665

PATIENT
  Age: 55 Year
  Sex: Male
  Weight: 150 kg

DRUGS (2)
  1. VIOXX [Suspect]
     Indication: ARTHRALGIA
     Route: 048
     Dates: start: 19990101, end: 20000901
  2. TYLENOL [Concomitant]
     Route: 065

REACTIONS (3)
  - HEADACHE [None]
  - MYOCARDIAL INFARCTION [None]
  - THROMBOSIS [None]
